FAERS Safety Report 7085849-1 (Version None)
Quarter: 2010Q4

REPORT INFORMATION
  Report Type: 
  Country: None (occurrence: None)
  Receive Date: 20101105
  Receipt Date: 20101026
  Transmission Date: 20110411
  Serious: Yes (Death)
  Sender: FDA-Public Use
  Company Number: US-ROCHE-737831

PATIENT
  Sex: Male

DRUGS (3)
  1. ISOTRETINOIN [Suspect]
     Dosage: PATIENT WAS DISPENSED ACCUTANE 20MG,40MG CAPSULE ON 28APR07 AND 10MG,20MG,40 MG CAPSULE ON 18JUL07
     Route: 065
  2. CLARAVIS [Suspect]
     Dosage: PATIENT WAS DISPENSED CLARAVIS 40 MG AND 10 MG CAPSULES ON 04 FEB 2010
     Route: 065
  3. SOTRET [Suspect]
     Dosage: PATIENT WAS DISPENSED SOTRET 40MG,20MG,10 MG CAPSULES ON 27MAY07 AND 10 MG CAPSULE ON 11SEP07
     Route: 065

REACTIONS (2)
  - DEATH [None]
  - DISEASE PROGRESSION [None]
